FAERS Safety Report 8811601 (Version 1)
Quarter: 2012Q4

REPORT INFORMATION
  Report Type: Spontaneous
  Country: US (occurrence: None)
  Receive Date: 20120926
  Receipt Date: 20120926
  Transmission Date: 20130627
  Serious: Yes (Hospitalization)
  Sender: FDA-Public Use
  Company Number: None

PATIENT
  Age: 73 Year
  Sex: Female
  Weight: 107.5 kg

DRUGS (1)
  1. PRADAXA [Suspect]
     Indication: AFIB
     Route: 048

REACTIONS (6)
  - Dizziness [None]
  - Haematochezia [None]
  - Dehydration [None]
  - Gastritis [None]
  - Diverticulum [None]
  - Polyp [None]
